FAERS Safety Report 24743719 (Version 1)
Quarter: 2024Q4

REPORT INFORMATION
  Report Type: Report from Study
  Country: US (occurrence: US)
  Receive Date: 20241217
  Receipt Date: 20241217
  Transmission Date: 20250115
  Serious: Yes (Other)
  Sender: ABBVIE
  Company Number: US-ABBVIE-6045223

PATIENT
  Age: 61 Year
  Sex: Male

DRUGS (2)
  1. SKYRIZI [Suspect]
     Active Substance: RISANKIZUMAB-RZAA
     Indication: Psoriasis
     Dosage: WEEK 0
     Route: 058
     Dates: start: 20240406, end: 20240406
  2. SKYRIZI [Suspect]
     Active Substance: RISANKIZUMAB-RZAA
     Dosage: WEEK 4 ,THEN EVERY 12 WEEKS
     Route: 058
     Dates: start: 20240504

REACTIONS (3)
  - Muscle rupture [Recovering/Resolving]
  - Fall [Unknown]
  - Meniscus injury [Recovering/Resolving]

NARRATIVE: CASE EVENT DATE: 20240101
